FAERS Safety Report 10177810 (Version 1)
Quarter: 2014Q2

REPORT INFORMATION
  Report Type: Spontaneous
  Country: US (occurrence: US)
  Receive Date: 20140516
  Receipt Date: 20140516
  Transmission Date: 20141212
  Serious: No
  Sender: FDA-Public Use
  Company Number: US-SA-2013SA101408

PATIENT
  Sex: Male

DRUGS (8)
  1. APIDRA [Suspect]
     Route: 058
     Dates: start: 20130904
  2. APIDRA [Suspect]
     Route: 058
     Dates: start: 20130926
  3. LANTUS [Suspect]
     Route: 058
     Dates: start: 20130904
  4. LANTUS [Suspect]
     Route: 058
     Dates: start: 20130926
  5. LANTUS SOLOSTAR [Suspect]
     Route: 051
     Dates: start: 20130920
  6. SOLOSTAR [Concomitant]
  7. APIDRA SOLOSTAR [Suspect]
     Route: 058
     Dates: start: 20130920
  8. SOLOSTAR [Concomitant]

REACTIONS (1)
  - Disturbance in attention [Unknown]
